FAERS Safety Report 8485489-3 (Version None)
Quarter: 2012Q3

REPORT INFORMATION
  Report Type: 
  Country: None (occurrence: None)
  Receive Date: 20120703
  Receipt Date: 20120622
  Transmission Date: 20120928
  Serious: Yes (Other)
  Sender: FDA-Public Use
  Company Number: JP-VERTEX PHARMACEUTICALS INC.-AE-2012-002365

PATIENT
  Age: 45 Year
  Sex: Male

DRUGS (22)
  1. PEG-INTRON [Concomitant]
     Route: 058
     Dates: start: 20111220, end: 20111227
  2. EPADEL S [Concomitant]
     Route: 048
  3. TELAVIC (TELAPREVIR) [Suspect]
     Indication: HEPATITIS C
     Route: 048
     Dates: start: 20111220, end: 20111222
  4. RABEPRAZOLE SODIUM [Concomitant]
     Route: 048
  5. PEG-INTRON [Concomitant]
     Route: 058
     Dates: start: 20120501
  6. LIVALO [Concomitant]
     Route: 048
  7. CLARITIN REDITABS [Concomitant]
     Route: 048
  8. TELAVIC (TELAPREVIR) [Suspect]
     Route: 048
     Dates: start: 20111227, end: 20111229
  9. TELAVIC (TELAPREVIR) [Suspect]
     Route: 048
     Dates: start: 20120507, end: 20120520
  10. MICARDIS [Concomitant]
     Route: 048
  11. RABEPRAZOLE SODIUM [Concomitant]
     Route: 048
  12. TELAVIC (TELAPREVIR) [Suspect]
     Route: 048
     Dates: start: 20120501, end: 20120506
  13. ALLOPURINOL [Concomitant]
     Route: 048
  14. EPADEL S [Concomitant]
     Route: 048
  15. REBETOL [Concomitant]
     Route: 048
     Dates: start: 20120501
  16. MICARDIS [Concomitant]
     Route: 048
  17. FEROTYM [Concomitant]
     Route: 048
  18. REBETOL [Concomitant]
     Route: 048
     Dates: start: 20111220, end: 20120104
  19. ALLOPURINOL [Concomitant]
     Route: 048
  20. CLARITIN REDITABS [Concomitant]
     Route: 048
  21. TELAVIC (TELAPREVIR) [Suspect]
     Route: 048
     Dates: start: 20120521
  22. LIVALO [Concomitant]
     Route: 048

REACTIONS (2)
  - RENAL DISORDER [None]
  - RENAL IMPAIRMENT [None]
